FAERS Safety Report 24175416 (Version 4)
Quarter: 2024Q3

REPORT INFORMATION
  Report Type: Report from Study
  Country: CN (occurrence: CN)
  Receive Date: 20240805
  Receipt Date: 20240910
  Transmission Date: 20241017
  Serious: Yes (Other)
  Sender: NOVARTIS
  Company Number: CN-002147023-NVSC2024CN048109

PATIENT
  Age: 65 Year
  Sex: Male
  Weight: 68 kg

DRUGS (3)
  1. COSENTYX [Suspect]
     Active Substance: SECUKINUMAB
     Indication: Psoriasis
     Dosage: 300 MG, QW
     Route: 058
     Dates: start: 202209
  2. COSENTYX [Suspect]
     Active Substance: SECUKINUMAB
     Dosage: 300 MG, QMO
     Route: 058
     Dates: end: 202305
  3. COSENTYX [Suspect]
     Active Substance: SECUKINUMAB
     Dosage: 300 MG, QMO
     Route: 058
     Dates: start: 202310

REACTIONS (15)
  - Cataract [Recovering/Resolving]
  - Macular hole [Unknown]
  - Drug ineffective [Not Recovered/Not Resolved]
  - Pruritus [Recovered/Resolved]
  - Ocular hyperaemia [Recovered/Resolved]
  - Eye swelling [Recovered/Resolved]
  - Psoriasis [Recovering/Resolving]
  - Disease recurrence [Recovering/Resolving]
  - Maculopathy [Recovering/Resolving]
  - Eye pruritus [Recovered/Resolved]
  - Noninfective gingivitis [Unknown]
  - Gingival swelling [Unknown]
  - Vision blurred [Unknown]
  - Visual acuity reduced [Unknown]
  - Tinea pedis [Unknown]

NARRATIVE: CASE EVENT DATE: 20220901
